FAERS Safety Report 6961358-2 (Version None)
Quarter: 2010Q3

REPORT INFORMATION
  Report Type: 
  Country: None (occurrence: None)
  Receive Date: 20100901
  Receipt Date: 20100826
  Transmission Date: 20110219
  Serious: Yes (Hospitalization, Disabling)
  Sender: FDA-Public Use
  Company Number: B0671674A

PATIENT
  Sex: Female

DRUGS (9)
  1. PAROXETINE HCL [Suspect]
     Indication: DEPRESSION
     Dosage: 20MG PER DAY
     Route: 048
     Dates: end: 20100101
  2. TAHOR [Suspect]
     Dosage: 40MG PER DAY
     Route: 048
     Dates: end: 20100301
  3. SITAGLIPTIN PHOSPHATE [Suspect]
     Dosage: 100MG PER DAY
     Route: 048
     Dates: start: 20091201, end: 20100301
  4. PARIET [Suspect]
     Dosage: 20MG PER DAY
     Route: 048
     Dates: end: 20100201
  5. METFORMIN HCL [Suspect]
     Dosage: 500MG TWICE PER DAY
     Route: 048
  6. BISOPROLOL FUMARATE [Suspect]
     Dosage: 5MG PER DAY
     Route: 048
  7. TAREG [Suspect]
     Dosage: 80MG PER DAY
     Route: 048
  8. KARDEGIC [Suspect]
     Dosage: 1UNIT PER DAY
     Route: 048
  9. LEVOTHYROXINE SODIUM [Suspect]
     Indication: HYPOTHYROIDISM
     Dosage: 75MCG PER DAY
     Route: 048

REACTIONS (7)
  - BLOOD CREATINE PHOSPHOKINASE INCREASED [None]
  - GENERAL PHYSICAL HEALTH DETERIORATION [None]
  - HYPERHIDROSIS [None]
  - HYPOAESTHESIA [None]
  - MYALGIA [None]
  - RHABDOMYOLYSIS [None]
  - WEIGHT DECREASED [None]
